FAERS Safety Report 7459655-X (Version None)
Quarter: 2011Q2

REPORT INFORMATION
  Report Type: 
  Country: None (occurrence: None)
  Receive Date: 20110505
  Receipt Date: 20110503
  Transmission Date: 20111010
  Serious: Yes (Other)
  Sender: FDA-Public Use
  Company Number: PHHY2011DE28448

PATIENT
  Age: 70 Year
  Sex: Female

DRUGS (3)
  1. TAFLOTAN [Concomitant]
  2. ACLASTA [Suspect]
     Indication: OSTEOPOROSIS
     Dosage: 5 MG
     Route: 042
     Dates: start: 20101201
  3. ANTIBIOTICS [Concomitant]

REACTIONS (7)
  - ABNORMAL SENSATION IN EYE [None]
  - PHOTOPHOBIA [None]
  - EYE IRRITATION [None]
  - ASTHENOPIA [None]
  - EYE PAIN [None]
  - ERYTHEMA OF EYELID [None]
  - PRURITUS [None]
